FAERS Safety Report 15614442 (Version 1)
Quarter: 2018Q4

REPORT INFORMATION
  Report Type: Spontaneous
  Country: US (occurrence: US)
  Receive Date: 20181113
  Receipt Date: 20181113
  Transmission Date: 20190205
  Serious: Yes (Other)
  Sender: FDA-Public Use
  Company Number: US-DSJP-DSU-2018-147763

PATIENT

DRUGS (1)
  1. WELCHOL [Suspect]
     Active Substance: COLESEVELAM HYDROCHLORIDE
     Indication: HYPERLIPIDAEMIA
     Dosage: 1875 MG, QD
     Route: 048
     Dates: start: 2014

REACTIONS (10)
  - Diabetes mellitus [Not Recovered/Not Resolved]
  - Nerve compression [Not Recovered/Not Resolved]
  - Memory impairment [Not Recovered/Not Resolved]
  - Chronic obstructive pulmonary disease [Not Recovered/Not Resolved]
  - Herpes zoster [Not Recovered/Not Resolved]
  - Confusional state [Not Recovered/Not Resolved]
  - Myocardial infarction [Recovered/Resolved]
  - Stent placement [Recovered/Resolved]
  - Lung disorder [Not Recovered/Not Resolved]
  - Off label use [Not Recovered/Not Resolved]

NARRATIVE: CASE EVENT DATE: 2014
